FAERS Safety Report 14932177 (Version 8)
Quarter: 2021Q3

REPORT INFORMATION
  Report Type: Report from Study
  Country: US (occurrence: US)
  Receive Date: 20180524
  Receipt Date: 20210716
  Transmission Date: 20211014
  Serious: Yes (Hospitalization, Other)
  Sender: FDA-Public Use
  Company Number: US-ACADIA PHARMACEUTICALS INC.-ACA-2018-007935

PATIENT
  Age: 71 Year
  Sex: Female

DRUGS (29)
  1. NUPLAZID [Suspect]
     Active Substance: PIMAVANSERIN TARTRATE
     Indication: PARKINSON^S DISEASE
     Dosage: 34 MILLIGRAM, QD
     Route: 048
     Dates: start: 2018
  2. NUPLAZID [Suspect]
     Active Substance: PIMAVANSERIN TARTRATE
     Indication: PARKINSON^S DISEASE PSYCHOSIS
  3. FLUTICASONE. [Concomitant]
     Active Substance: FLUTICASONE
  4. LEVETIRACETAM. [Concomitant]
     Active Substance: LEVETIRACETAM
  5. PAROXETINE. [Concomitant]
     Active Substance: PAROXETINE
  6. TIZANIDINE. [Concomitant]
     Active Substance: TIZANIDINE
  7. NUPLAZID [Suspect]
     Active Substance: PIMAVANSERIN TARTRATE
     Dosage: 34 MILLIGRAM, QD
     Route: 048
  8. NUPLAZID [Suspect]
     Active Substance: PIMAVANSERIN TARTRATE
     Indication: HALLUCINATION
     Dosage: 17 MG, BID
     Dates: start: 20180221, end: 2018
  9. FAMOTIDINE. [Concomitant]
     Active Substance: FAMOTIDINE
  10. IPRATROPIUM [Concomitant]
     Active Substance: IPRATROPIUM
  11. POLYETHYLENE GLYCOL [MACROGOL] [Concomitant]
     Active Substance: POLYETHYLENE GLYCOLS
  12. PREDNISONE. [Concomitant]
     Active Substance: PREDNISONE
  13. GABAPENTIN. [Concomitant]
     Active Substance: GABAPENTIN
  14. BUDESONIDE. [Concomitant]
     Active Substance: BUDESONIDE
  15. PREGABALIN. [Concomitant]
     Active Substance: PREGABALIN
  16. TORSEMIDE. [Concomitant]
     Active Substance: TORSEMIDE
  17. NUPLAZID [Suspect]
     Active Substance: PIMAVANSERIN TARTRATE
     Indication: DELUSION
     Dosage: 34 MG, QD
     Route: 048
     Dates: start: 20180302, end: 2018
  18. STIMULANT + ENERGISER GUARANA + SIBERIAN GINSENG [Concomitant]
  19. CARBIDOPA/LEVODOPA [Concomitant]
     Active Substance: CARBIDOPA\LEVODOPA
  20. NUPLAZID [Suspect]
     Active Substance: PIMAVANSERIN TARTRATE
     Dosage: 34 MILLIGRAM, QD
     Route: 048
     Dates: start: 20210128, end: 202105
  21. ALBUTEROL SULFATE. [Concomitant]
     Active Substance: ALBUTEROL SULFATE
  22. SPIRONOLACTONE. [Concomitant]
     Active Substance: SPIRONOLACTONE
  23. ULTRAM [Concomitant]
     Active Substance: TRAMADOL HYDROCHLORIDE
  24. NUPLAZID [Suspect]
     Active Substance: PIMAVANSERIN TARTRATE
     Dosage: 34 MILLIGRAM, QD
     Route: 048
     Dates: start: 20191231
  25. METOLAZONE. [Concomitant]
     Active Substance: METOLAZONE
  26. MORPHINE [Concomitant]
     Active Substance: MORPHINE
  27. OMEPRAZOLE. [Concomitant]
     Active Substance: OMEPRAZOLE
  28. OXYCODONE [Concomitant]
     Active Substance: OXYCODONE
  29. PRAVACHOL [Concomitant]
     Active Substance: PRAVASTATIN SODIUM

REACTIONS (12)
  - Haemophilus infection [Recovered/Resolved]
  - Unresponsive to stimuli [Unknown]
  - Chronic obstructive pulmonary disease [Unknown]
  - Chronic obstructive pulmonary disease [Not Recovered/Not Resolved]
  - Pneumonia [Unknown]
  - Pneumonia [Unknown]
  - Seizure [Not Recovered/Not Resolved]
  - Arthropathy [Not Recovered/Not Resolved]
  - Nausea [Not Recovered/Not Resolved]
  - Product dose omission issue [Recovered/Resolved]
  - Carbon dioxide abnormal [Unknown]
  - Inappropriate schedule of product administration [Unknown]

NARRATIVE: CASE EVENT DATE: 201812
